FAERS Safety Report 8551769-6 (Version None)
Quarter: 2012Q3

REPORT INFORMATION
  Report Type: 
  Country: None (occurrence: None)
  Receive Date: 20120730
  Receipt Date: 20120726
  Transmission Date: 20120928
  Serious: Yes (Hospitalization)
  Sender: FDA-Public Use
  Company Number: US-B.I. PHARMACEUTICALS,INC./RIDGEFIELD-2012-BP-16650BP

PATIENT
  Sex: Female

DRUGS (15)
  1. LOSARTAN POTASSIUM [Concomitant]
     Indication: HYPERTENSION
     Dosage: 50 MG
     Route: 048
  2. AMITRIPTYLINE HYDROCHLORIDE [Concomitant]
     Indication: NERVE INJURY
     Dosage: 25 MG
     Route: 048
  3. OMEPRAZOLE [Concomitant]
     Indication: ABDOMINAL DISCOMFORT
     Dosage: 40 MG
     Route: 048
  4. COREG [Concomitant]
     Indication: HYPERTENSION
     Dosage: 12.5 MG
     Route: 048
  5. ALBUTEROL [Concomitant]
     Indication: EMPHYSEMA
  6. SIMVASTATIN [Concomitant]
     Indication: BLOOD CHOLESTEROL INCREASED
     Dosage: 40 MG
     Route: 048
  7. ASPIRIN [Concomitant]
     Indication: PROPHYLAXIS
     Dosage: 81 MG
     Route: 048
  8. COMBIVENT [Suspect]
     Indication: EMPHYSEMA
     Route: 055
     Dates: start: 20070101
  9. DIGOXIN [Concomitant]
     Indication: CARDIAC DISORDER
     Dosage: 125 MCG
     Route: 048
  10. METFORMIN HYDROCHLORIDE [Concomitant]
     Indication: DIABETES MELLITUS
     Dosage: 1000 MG
     Route: 048
  11. MUCINEX [Concomitant]
     Indication: NASAL CONGESTION
     Dosage: 1200 MG
     Route: 048
  12. VITAMIN D [Concomitant]
     Indication: VITAMIN SUPPLEMENTATION
     Dosage: 1000 U
     Route: 048
  13. FUROSEMIDE [Concomitant]
     Indication: OEDEMA
     Route: 048
  14. POTASSIUM CHLORIDE [Concomitant]
     Indication: VITAMIN SUPPLEMENTATION
     Route: 048
  15. NEURONTIN [Concomitant]
     Indication: NERVE INJURY
     Dosage: 900 MG
     Route: 048

REACTIONS (1)
  - RESPIRATORY ARREST [None]
